FAERS Safety Report 15233453 (Version 1)
Quarter: 2018Q3

REPORT INFORMATION
  Report Type: Spontaneous
  Country: DE (occurrence: DE)
  Receive Date: 20180802
  Receipt Date: 20180802
  Transmission Date: 20181010
  Serious: Yes (Hospitalization)
  Sender: FDA-Public Use
  Company Number: DE-SAKK-2018SA164232AA

PATIENT
  Age: 82 Year
  Sex: Male

DRUGS (11)
  1. EISEN [IRON] [Concomitant]
     Dosage: 100 MG, QD
  2. XIPAMIDE [Concomitant]
     Active Substance: XIPAMIDE
     Dosage: 10 MG, QD
     Route: 065
  3. ASS 100 [Suspect]
     Active Substance: ASPIRIN
     Dosage: 100 MG, QD
     Route: 065
  4. ALLOPURINOL. [Concomitant]
     Active Substance: ALLOPURINOL
     Dosage: 100 MG, QD
     Route: 065
  5. SIMVASTATIN. [Concomitant]
     Active Substance: SIMVASTATIN
     Dosage: 40 MG, 0?0?1?0
     Route: 065
  6. PANTOPRAZOL +PHARMA [Concomitant]
     Dosage: 40 MG, QD
     Route: 065
  7. TORASEMID [Concomitant]
     Active Substance: TORSEMIDE
     Dosage: 10 MG, 1?0.5?0?0
  8. CLOPIDOGREL BISULFATE. [Suspect]
     Active Substance: CLOPIDOGREL BISULFATE
     Dosage: 75 MG, QD
     Route: 065
  9. METOPROLOL. [Concomitant]
     Active Substance: METOPROLOL
     Dosage: 23.75 MG
     Route: 065
  10. ELIQUIS [Suspect]
     Active Substance: APIXABAN
     Dosage: 2.5 MG, QD
     Route: 065
  11. METAMIZOL 1A PHARMA [Concomitant]
     Dosage: NK MG, 1?3 TABL.

REACTIONS (2)
  - Fatigue [Unknown]
  - Asthenia [Unknown]
